FAERS Safety Report 14698063 (Version 2)
Quarter: 2018Q3

REPORT INFORMATION
  Report Type: Spontaneous
  Country: GB (occurrence: GB)
  Receive Date: 20180330
  Receipt Date: 20180806
  Transmission Date: 20181010
  Serious: Yes (Other)
  Sender: FDA-Public Use
  Company Number: GB-CONCORDIA PHARMACEUTICALS INC.-E2B_00010761

PATIENT
  Sex: Female

DRUGS (6)
  1. MYCOPHENOLIC ACID. [Suspect]
     Active Substance: MYCOPHENOLIC ACID
     Indication: IMMUNODEFICIENCY COMMON VARIABLE
  2. PREDNISOLONE. [Suspect]
     Active Substance: PREDNISOLONE
     Indication: IMMUNODEFICIENCY COMMON VARIABLE
  3. PREDNISOLONE. [Suspect]
     Active Substance: PREDNISOLONE
     Indication: GASTROINTESTINAL INFLAMMATION
     Dosage: LESS THAN 10 MG DAILY.
  4. IMMUNOGLOBULIN [Concomitant]
     Dosage: HIGH DOSE
  5. PREDNISOLONE. [Suspect]
     Active Substance: PREDNISOLONE
     Indication: ARTHRITIS
     Dosage: LOW DOSE
  6. MYCOPHENOLIC ACID. [Suspect]
     Active Substance: MYCOPHENOLIC ACID
     Indication: ARTHRITIS

REACTIONS (2)
  - Cytomegalovirus viraemia [Unknown]
  - Gastric ulcer [Unknown]
